FAERS Safety Report 21311284 (Version 2)
Quarter: 2023Q1

REPORT INFORMATION
  Report Type: Spontaneous
  Country: US (occurrence: US)
  Receive Date: 20220909
  Receipt Date: 20230213
  Transmission Date: 20230418
  Serious: No
  Sender: FDA-Public Use
  Company Number: US-BRISTOL-MYERS SQUIBB COMPANY-2022-103283

PATIENT
  Age: 63 Year
  Sex: Female

DRUGS (2)
  1. LENALIDOMIDE [Suspect]
     Active Substance: LENALIDOMIDE
     Indication: Product used for unknown indication
     Dosage: FREQ:DAILY FOR 28 DAYS, DOSE: 2 CAPSULES
     Route: 048
     Dates: start: 20151021
  2. LENALIDOMIDE [Suspect]
     Active Substance: LENALIDOMIDE
     Dosage: FREQ: DAILY FOR 28 DAYS
     Route: 048

REACTIONS (2)
  - Upper respiratory tract infection [Recovering/Resolving]
  - Illness [Unknown]
